FAERS Safety Report 8973930 (Version 1)
Quarter: 2012Q4

REPORT INFORMATION
  Report Type: 
  Country: GB (occurrence: GB)
  Receive Date: 20121218
  Receipt Date: 20121218
  Transmission Date: 20130627
  Serious: Yes (Other)
  Sender: FDA-Public Use
  Company Number: PHHY2012GB115262

PATIENT
  Age: 23 Year
  Sex: Male

DRUGS (2)
  1. TRAMADOL [Suspect]
     Indication: BACK PAIN
     Dosage: 50 mg
     Route: 048
     Dates: start: 20121116, end: 20121120
  2. NAPROXEN [Concomitant]
     Indication: BACK PAIN
     Dosage: 500 mg
     Route: 048
     Dates: start: 20121116

REACTIONS (3)
  - Contusion [Recovering/Resolving]
  - Dyskinesia [Recovering/Resolving]
  - Insomnia [Recovering/Resolving]
